FAERS Safety Report 14163901 (Version 4)
Quarter: 2017Q4

REPORT INFORMATION
  Report Type: Report from Study
  Country: PH (occurrence: PH)
  Receive Date: 20171106
  Receipt Date: 20171208
  Transmission Date: 20180321
  Serious: Yes (Death, Hospitalization, Other)
  Sender: FDA-Public Use
  Company Number: PHHY2017PH155063

PATIENT
  Age: 50 Year
  Sex: Male

DRUGS (1)
  1. GLIVEC [Suspect]
     Active Substance: IMATINIB MESYLATE
     Indication: GASTROINTESTINAL STROMAL TUMOUR
     Dosage: 400 MG, QD
     Route: 048
     Dates: start: 20130624, end: 20171030

REACTIONS (7)
  - Gastrointestinal haemorrhage [Fatal]
  - Gastrointestinal stromal tumour [Unknown]
  - Second primary malignancy [Unknown]
  - Renal neoplasm [Unknown]
  - Metastasis [Recovered/Resolved]
  - Malignant neoplasm progression [Unknown]
  - Haemoglobin decreased [Unknown]

NARRATIVE: CASE EVENT DATE: 2013
